FAERS Safety Report 6616364-4 (Version None)
Quarter: 2010Q1

REPORT INFORMATION
  Report Type: 
  Country: None (occurrence: None)
  Receive Date: 20100305
  Receipt Date: 20100224
  Transmission Date: 20100710
  Serious: Yes (Other)
  Sender: FDA-Public Use
  Company Number: AR-BRISTOL-MYERS SQUIBB COMPANY-14557383

PATIENT
  Age: 60 Year
  Sex: Male

DRUGS (7)
  1. DAPAGLIFLOZIN [Suspect]
     Indication: TYPE 2 DIABETES MELLITUS
     Dosage: STOP DATE:10FEB09;RESUME DATE:11FEB09.
     Route: 048
     Dates: start: 20081119, end: 20090320
  2. GLIPIZIDE [Suspect]
     Indication: TYPE 2 DIABETES MELLITUS
     Dosage: STOP DATE 09FEB09;RESUME DATE:11FEB09.
     Route: 048
     Dates: start: 20081119, end: 20090320
  3. GLUCOPHAGE [Suspect]
     Indication: TYPE 2 DIABETES MELLITUS
     Dosage: THERAPY DATES:UNK-10SEP08;26MAR09-CONTI
     Route: 048
     Dates: start: 20080911
  4. PLACEBO [Suspect]
     Indication: TYPE 2 DIABETES MELLITUS
     Dosage: STOP DATE 09FEB09;RESUME DATE:11FEB09.
     Route: 048
     Dates: start: 20081119, end: 20090320
  5. GLIMEPIRIDE [Concomitant]
     Indication: TYPE 2 DIABETES MELLITUS
     Route: 048
     Dates: start: 20090326
  6. ENALAPRIL MALEATE [Concomitant]
     Indication: HYPERTENSION
     Route: 048
  7. BISMUTH [Concomitant]
     Indication: GASTROENTERITIS
     Route: 048
     Dates: start: 20090209, end: 20090210

REACTIONS (2)
  - HEPATIC NEOPLASM MALIGNANT [None]
  - PROSTATE CANCER [None]
